FAERS Safety Report 7785626-X (Version None)
Quarter: 2011Q3

REPORT INFORMATION
  Report Type: 
  Country: None (occurrence: None)
  Receive Date: 20110929
  Receipt Date: 20110916
  Transmission Date: 20111222
  Serious: Yes (Other)
  Sender: FDA-Public Use
  Company Number: US-JNJFOC-20110909608

PATIENT
  Sex: Female

DRUGS (1)
  1. FRESHBURST LISTERINE [Suspect]
     Indication: ALCOHOL USE
     Route: 048

REACTIONS (2)
  - INCORRECT ROUTE OF DRUG ADMINISTRATION [None]
  - DRUG ABUSE [None]
